FAERS Safety Report 19915812 (Version 1)
Quarter: 2021Q4

REPORT INFORMATION
  Report Type: Spontaneous
  Country: US (occurrence: US)
  Receive Date: 20211004
  Receipt Date: 20211004
  Transmission Date: 20220304
  Serious: No
  Sender: FDA-Public Use
  Company Number: US-OTSUKA-2020_025113

PATIENT
  Sex: Female

DRUGS (5)
  1. ABILIFY MAINTENA [Suspect]
     Active Substance: ARIPIPRAZOLE
     Indication: Product used for unknown indication
     Dosage: 400 MG, QM (A LONG TIME)
     Route: 030
  2. ARIPIPRAZOLE [Suspect]
     Active Substance: ARIPIPRAZOLE
     Indication: Product used for unknown indication
     Dosage: 5 MG, UNK (AT BEDTIME )
     Route: 048
     Dates: start: 20201012
  3. FLUPHENAZINE [Concomitant]
     Active Substance: FLUPHENAZINE
     Indication: Product used for unknown indication
     Dosage: 5 MG, UNK
     Route: 065
  4. FLUPHENAZINE [Concomitant]
     Active Substance: FLUPHENAZINE
     Dosage: 2.5 MG, UNK
     Route: 065
  5. DEPAKOTE [Concomitant]
     Active Substance: DIVALPROEX SODIUM
     Indication: Product used for unknown indication
     Dosage: 500 MG, UNK
     Route: 065

REACTIONS (11)
  - Sensory disturbance [Unknown]
  - Thinking abnormal [Unknown]
  - Joint stiffness [Unknown]
  - Abdominal pain [Unknown]
  - Muscle spasms [Unknown]
  - Orthostatic hypotension [Unknown]
  - Seizure [Unknown]
  - Dyskinesia [Recovered/Resolved]
  - Tremor [Unknown]
  - Injection site pain [Recovered/Resolved]
  - Bradykinesia [Unknown]
